FAERS Safety Report 25571541 (Version 1)
Quarter: 2025Q3

REPORT INFORMATION
  Report Type: Spontaneous
  Country: EU (occurrence: EU)
  Receive Date: 20250717
  Receipt Date: 20250717
  Transmission Date: 20251021
  Serious: Yes (Other)
  Sender: MYLAN
  Company Number: EU-MYLANLABS-2025M1059134

PATIENT
  Age: 16 Year
  Sex: Female

DRUGS (12)
  1. VANCOMYCIN [Suspect]
     Active Substance: VANCOMYCIN
     Indication: Extradural abscess
  2. VANCOMYCIN [Suspect]
     Active Substance: VANCOMYCIN
     Route: 065
  3. VANCOMYCIN [Suspect]
     Active Substance: VANCOMYCIN
     Route: 065
  4. VANCOMYCIN [Suspect]
     Active Substance: VANCOMYCIN
  5. CEFTRIAXONE [Suspect]
     Active Substance: CEFTRIAXONE
     Indication: Extradural abscess
  6. CEFTRIAXONE [Suspect]
     Active Substance: CEFTRIAXONE
     Route: 065
  7. CEFTRIAXONE [Suspect]
     Active Substance: CEFTRIAXONE
     Route: 065
  8. CEFTRIAXONE [Suspect]
     Active Substance: CEFTRIAXONE
  9. METRONIDAZOLE [Suspect]
     Active Substance: METRONIDAZOLE
     Indication: Extradural abscess
  10. METRONIDAZOLE [Suspect]
     Active Substance: METRONIDAZOLE
     Indication: Alpha haemolytic streptococcal infection
     Route: 065
  11. METRONIDAZOLE [Suspect]
     Active Substance: METRONIDAZOLE
     Route: 065
  12. METRONIDAZOLE [Suspect]
     Active Substance: METRONIDAZOLE

REACTIONS (5)
  - Neutropenia [Recovered/Resolved]
  - Toxicity to various agents [Recovered/Resolved]
  - Vomiting [Recovered/Resolved]
  - Nausea [Recovered/Resolved]
  - Pyrexia [Recovered/Resolved]
